FAERS Safety Report 6370791-1 (Version None)
Quarter: 2009Q3

REPORT INFORMATION
  Report Type: 
  Country: None (occurrence: None)
  Receive Date: 20090923
  Receipt Date: 20070507
  Transmission Date: 20100115
  Serious: No
  Sender: FDA-Public Use
  Company Number: US-ASTRAZENECA-2006UW24839

PATIENT
  Age: 61 Year
  Sex: Female
  Weight: 71.9 kg

DRUGS (21)
  1. SEROQUEL [Suspect]
     Indication: SLEEP DISORDER
     Route: 048
     Dates: start: 20051107, end: 20060101
  2. SEROQUEL [Suspect]
     Route: 048
     Dates: start: 20060101
  3. PERCOCET [Concomitant]
  4. NORVASC [Concomitant]
  5. CELEBREX [Concomitant]
  6. LISINOPRIL [Concomitant]
  7. METFORMIN HCL [Concomitant]
  8. ZOLOFT [Concomitant]
  9. DEPAKOTE [Concomitant]
  10. LEVOXYL [Concomitant]
  11. VALIUM [Concomitant]
  12. XANAX [Concomitant]
  13. COMPAZINE [Concomitant]
  14. PRILOSEC [Concomitant]
  15. NAPROXEN [Concomitant]
  16. HYDROCHLOROTHIAZIDE [Concomitant]
  17. ASPIRIN [Concomitant]
  18. ATROPINE [Concomitant]
  19. CIPROFLOXACIN HCL [Concomitant]
  20. HALOPERIDOL [Concomitant]
  21. GABAPENTIN [Concomitant]

REACTIONS (1)
  - TYPE 1 DIABETES MELLITUS [None]
